FAERS Safety Report 4931107-8 (Version None)
Quarter: 2006Q1

REPORT INFORMATION
  Report Type: 
  Country: None (occurrence: None)
  Receive Date: 20060302
  Receipt Date: 20030605
  Transmission Date: 20060701
  Serious: Yes (Hospitalization, Disabling, Other)
  Sender: FDA-Public Use
  Company Number: US-MERCK-0306USA00892

PATIENT
  Age: 54 Year
  Sex: Male
  Weight: 82 kg

DRUGS (1)
  1. VIOXX [Suspect]
     Indication: BACK PAIN
     Route: 048
     Dates: start: 20010101, end: 20040101

REACTIONS (32)
  - ANGINA UNSTABLE [None]
  - ARTHRITIS [None]
  - ASTHENIA [None]
  - BREATHING-RELATED SLEEP DISORDER [None]
  - BURNING SENSATION [None]
  - CATARACT [None]
  - CHEST PAIN [None]
  - CONSTIPATION [None]
  - CORONARY ARTERY DISEASE [None]
  - COUGH [None]
  - EYE DISORDER [None]
  - FEMORAL ARTERIAL STENOSIS [None]
  - HYPERCHOLESTEROLAEMIA [None]
  - HYPERLIPIDAEMIA [None]
  - HYPOAESTHESIA [None]
  - INJURY [None]
  - LUNG NEOPLASM MALIGNANT [None]
  - MASS [None]
  - MYOCARDIAL INFARCTION [None]
  - NECK PAIN [None]
  - NEOPLASM [None]
  - OEDEMA PERIPHERAL [None]
  - PAIN IN EXTREMITY [None]
  - PALPITATIONS [None]
  - PARAESTHESIA [None]
  - PERIPHERAL VASCULAR DISORDER [None]
  - POST PROCEDURAL HAEMATOMA [None]
  - PROCEDURAL PAIN [None]
  - PYREXIA [None]
  - STRESS FRACTURE [None]
  - UMBILICAL HERNIA [None]
  - WEIGHT INCREASED [None]
